FAERS Safety Report 22184837 (Version 1)
Quarter: 2023Q2

REPORT INFORMATION
  Report Type: Report from Study
  Country: US (occurrence: None)
  Receive Date: 20230407
  Receipt Date: 20230407
  Transmission Date: 20230721
  Serious: Yes (Hospitalization)
  Sender: FDA-Public Use
  Company Number: US-Merck Healthcare KGaA-9394909

PATIENT
  Sex: Female

DRUGS (1)
  1. REBIF [Suspect]
     Active Substance: INTERFERON BETA-1A
     Indication: Multiple sclerosis
     Dosage: REBIF PREFILLED SYRINGE
     Route: 058
     Dates: start: 20050112

REACTIONS (6)
  - Cardiac disorder [Unknown]
  - Hypertension [Unknown]
  - Bronchitis [Unknown]
  - Pneumonia [Unknown]
  - Asthenia [Unknown]
  - Ear discomfort [Unknown]
